FAERS Safety Report 13037223 (Version 1)
Quarter: 2016Q4

REPORT INFORMATION
  Report Type: Spontaneous
  Country: US (occurrence: US)
  Receive Date: 20161216
  Receipt Date: 20161216
  Transmission Date: 20170207
  Serious: No
  Sender: FDA-Public Use
  Company Number: US-ELI_LILLY_AND_COMPANY-US201612006362

PATIENT
  Age: 60 Year
  Sex: Female

DRUGS (3)
  1. TRULICITY [Suspect]
     Active Substance: DULAGLUTIDE
     Indication: HORMONE THERAPY
     Dosage: 0.75 MG, WEEKLY (1/W)
     Route: 065
     Dates: start: 201608
  2. TRULICITY [Suspect]
     Active Substance: DULAGLUTIDE
     Indication: INSULIN RESISTANCE
     Dosage: 0.75 MG, WEEKLY (1/W)
     Route: 065
     Dates: start: 201608
  3. TRULICITY [Suspect]
     Active Substance: DULAGLUTIDE
     Indication: WEIGHT CONTROL

REACTIONS (5)
  - Nausea [Unknown]
  - Underdose [Unknown]
  - Abdominal discomfort [Unknown]
  - Off label use [Unknown]
  - Blood glucose decreased [Unknown]

NARRATIVE: CASE EVENT DATE: 201608
